FAERS Safety Report 14006830 (Version 4)
Quarter: 2018Q4

REPORT INFORMATION
  Report Type: Spontaneous
  Country: US (occurrence: US)
  Receive Date: 20170925
  Receipt Date: 20181001
  Transmission Date: 20190204
  Serious: Yes (Hospitalization)
  Sender: FDA-Public Use
  Company Number: US-PFIZER INC-2017409447

PATIENT
  Age: 59 Year
  Sex: Female

DRUGS (2)
  1. IBRANCE [Suspect]
     Active Substance: PALBOCICLIB
     Dosage: 125 MG, CYCLIC(1 CAP PO DAILY X 21 DAYS THEN 7 DAYS OFF)
     Route: 048
     Dates: start: 20170914
  2. IBRANCE [Suspect]
     Active Substance: PALBOCICLIB
     Dosage: 125 MG, CYCLIC(Q DAY X 7 DAYS, 7 DAYS OFF)
     Route: 048
     Dates: start: 20170914

REACTIONS (5)
  - Hypoaesthesia [Unknown]
  - Skin discolouration [Unknown]
  - Retching [Unknown]
  - Urinary tract infection [Unknown]
  - Vomiting [Unknown]

NARRATIVE: CASE EVENT DATE: 2017
